FAERS Safety Report 4803197-4 (Version None)
Quarter: 2005Q4

REPORT INFORMATION
  Report Type: 
  Country: None (occurrence: None)
  Receive Date: 20051019
  Receipt Date: 20051010
  Transmission Date: 20060501
  Serious: Yes (Other)
  Sender: FDA-Public Use
  Company Number: PHEH2005US11333

PATIENT
  Sex: Female

DRUGS (6)
  1. ZOMETA [Suspect]
     Indication: METASTASES TO BONE
     Dosage: 4 MG
     Dates: start: 20041101, end: 20050801
  2. XELODA [Concomitant]
  3. TAXOTERE [Concomitant]
  4. GEMZAR [Concomitant]
  5. OXYCONTIN [Concomitant]
  6. PERCOCET [Concomitant]

REACTIONS (1)
  - OSTEONECROSIS [None]
